FAERS Safety Report 16791195 (Version 1)
Quarter: 2019Q3

REPORT INFORMATION
  Report Type: Spontaneous
  Country: US (occurrence: US)
  Receive Date: 20190719
  Receipt Date: 20190719
  Transmission Date: 20191005
  Serious: Yes (Hospitalization)
  Sender: FDA-Public Use
  Company Number: None

PATIENT
  Sex: Female

DRUGS (4)
  1. LYRICA CAP [Concomitant]
  2. HUMIRA [Suspect]
     Active Substance: ADALIMUMAB
     Indication: PSORIATIC ARTHROPATHY
     Route: 058
     Dates: start: 20150317
  3. MARDIL TAB [Concomitant]
  4. NEXIUM CAP [Concomitant]

REACTIONS (3)
  - Condition aggravated [None]
  - Product dose omission [None]
  - Ovarian cyst [None]
